FAERS Safety Report 6460868-4 (Version None)
Quarter: 2009Q4

REPORT INFORMATION
  Report Type: 
  Country: None (occurrence: None)
  Receive Date: 20091125
  Receipt Date: 20091125
  Transmission Date: 20100525
  Serious: Yes (Other)
  Sender: FDA-Public Use
  Company Number: None

PATIENT
  Age: 56 Year
  Sex: Male
  Weight: 95.2554 kg

DRUGS (12)
  1. TRAMADOL HCL [Suspect]
     Indication: BACK PAIN
     Dosage: 1 OR 2 TABLETS ORALLY EVERY 8 HOURS PO
     Route: 048
     Dates: start: 20091030, end: 20091103
  2. TRAMADOL HCL [Suspect]
     Indication: TENDONITIS
     Dosage: 1 OR 2 TABLETS ORALLY EVERY 8 HOURS PO
     Route: 048
     Dates: start: 20091030, end: 20091103
  3. LISINOPRIL [Concomitant]
  4. ZYRTEC [Concomitant]
  5. FLUTICASONE PROPIONATE [Concomitant]
  6. ASTILINE [Concomitant]
  7. FISH OIL [Concomitant]
  8. MULTI-VITAMIN [Concomitant]
  9. SAW PALMETTO [Concomitant]
  10. FLOMAX [Concomitant]
  11. ASPIRIN [Concomitant]
  12. ZANTAC [Concomitant]

REACTIONS (2)
  - EJACULATION FAILURE [None]
  - ERECTILE DYSFUNCTION [None]
